FAERS Safety Report 20183053 (Version 3)
Quarter: 2022Q1

REPORT INFORMATION
  Report Type: Spontaneous
  Country: CA (occurrence: CA)
  Receive Date: 20211214
  Receipt Date: 20220204
  Transmission Date: 20220423
  Serious: Yes (Hospitalization)
  Sender: FDA-Public Use
  Company Number: CA-PFIZER INC-202101274896

PATIENT
  Age: 86 Year
  Sex: Female

DRUGS (3)
  1. IBRANCE [Suspect]
     Active Substance: PALBOCICLIB
     Dosage: DAILY FOR 21 DAYS, STOP FOR 14 DAYS
     Route: 048
     Dates: start: 20191116
  2. IBRANCE [Suspect]
     Active Substance: PALBOCICLIB
     Dosage: DAILY FOR 21 DAYS
     Route: 048
     Dates: start: 20211203
  3. IBRANCE [Suspect]
     Active Substance: PALBOCICLIB
     Dosage: 75 MG, CYCLIC, DAILY FOR 21 DAYS IN A ROW. STOP FOR 14DAYS
     Route: 048
     Dates: start: 20220119

REACTIONS (6)
  - Gastrointestinal disorder [Unknown]
  - Condition aggravated [Unknown]
  - Weight increased [Unknown]
  - Body surface area increased [Unknown]
  - Off label use [Unknown]
  - Product use issue [Unknown]
